FAERS Safety Report 17847568 (Version 1)
Quarter: 2020Q2

REPORT INFORMATION
  Report Type: Spontaneous
  Country: US (occurrence: US)
  Receive Date: 20200601
  Receipt Date: 20200601
  Transmission Date: 20200714
  Serious: No
  Sender: FDA-Public Use
  Company Number: US-NEPHRON STERILE COMPOUNDING CENTER-2085328

PATIENT

DRUGS (1)
  1. DEL NIDO CARDIOPLEGIA [Suspect]
     Active Substance: LIDOCAINE\MAGNESIUM SULFATE\MANNITOL\PLASMA-LYTE A\SODIUM BICARBONATE
     Route: 016
     Dates: start: 20200520, end: 20200520

REACTIONS (1)
  - Drug ineffective [Unknown]
